FAERS Safety Report 11120485 (Version 3)
Quarter: 2015Q2

REPORT INFORMATION
  Report Type: Spontaneous
  Country: US (occurrence: US)
  Receive Date: 20150518
  Receipt Date: 20150618
  Transmission Date: 20150821
  Serious: Yes (Life-Threatening, Hospitalization, Disabling, Other)
  Sender: FDA-Public Use
  Company Number: US-009507513-1505USA003915

PATIENT
  Age: 57 Year
  Sex: Male

DRUGS (19)
  1. VITAMIN D [Concomitant]
     Active Substance: CHOLECALCIFEROL
  2. THIAMINE HYDROCHLORIDE. [Concomitant]
     Active Substance: THIAMINE HYDROCHLORIDE
  3. CRESTOR [Concomitant]
     Active Substance: ROSUVASTATIN CALCIUM
  4. FERROUS SULFATE [Concomitant]
     Active Substance: FERROUS SULFATE\FERROUS SULFATE, DRIED
     Route: 048
  5. VALPROIC ACID. [Concomitant]
     Active Substance: VALPROIC ACID
  6. PROTONIX [Concomitant]
     Active Substance: PANTOPRAZOLE SODIUM
  7. OXYCODONE [Concomitant]
     Active Substance: OXYCODONE
  8. MAGNESIUM OXIDE. [Concomitant]
     Active Substance: MAGNESIUM OXIDE
  9. LANTUS [Concomitant]
     Active Substance: INSULIN GLARGINE
  10. PERCOCET [Concomitant]
     Active Substance: ACETAMINOPHEN\OXYCODONE HYDROCHLORIDE
  11. MEXILETINE [Concomitant]
     Active Substance: MEXILETINE
  12. INVANZ [Suspect]
     Active Substance: ERTAPENEM SODIUM
     Indication: BACTERAEMIA
     Dosage: 1 G, QD
     Route: 042
     Dates: start: 2014
  13. PREDNISONE. [Concomitant]
     Active Substance: PREDNISONE
     Route: 048
  14. LEXAPRO [Concomitant]
     Active Substance: ESCITALOPRAM OXALATE
  15. LEVETIRACETAM. [Concomitant]
     Active Substance: LEVETIRACETAM
  16. GABAPENTIN. [Concomitant]
     Active Substance: GABAPENTIN
  17. TIKOSYN [Concomitant]
     Active Substance: DOFETILIDE
  18. HUMALOG [Concomitant]
     Active Substance: INSULIN LISPRO
  19. LISINOPRIL. [Concomitant]
     Active Substance: LISINOPRIL
     Route: 048

REACTIONS (28)
  - Lung disorder [Unknown]
  - Decubitus ulcer [Recovering/Resolving]
  - Surgery [Unknown]
  - Herpes zoster [Recovering/Resolving]
  - Fungal infection [Unknown]
  - Type 2 diabetes mellitus [Unknown]
  - Presyncope [Unknown]
  - Cardiac failure [Unknown]
  - Depression [Unknown]
  - Enterococcal infection [Unknown]
  - Cardiogenic shock [Unknown]
  - Pain [Unknown]
  - Haemorrhagic stroke [Unknown]
  - Bullous lung disease [Unknown]
  - Bacteraemia [Unknown]
  - Ventricular tachycardia [Unknown]
  - Chronic obstructive pulmonary disease [Unknown]
  - Urinary tract infection fungal [Unknown]
  - Ventricular tachycardia [Unknown]
  - Serratia bacteraemia [Unknown]
  - Fall [Unknown]
  - Condition aggravated [Unknown]
  - Organising pneumonia [Unknown]
  - Asthenia [Unknown]
  - Seizure [Unknown]
  - Endocarditis [Unknown]
  - Atrial fibrillation [Unknown]
  - Staphylococcal infection [Unknown]

NARRATIVE: CASE EVENT DATE: 2014
